FAERS Safety Report 12607900 (Version 1)
Quarter: 2016Q3

REPORT INFORMATION
  Report Type: Spontaneous
  Country: FR (occurrence: FR)
  Receive Date: 20160729
  Receipt Date: 20160729
  Transmission Date: 20161109
  Serious: Yes (Hospitalization)
  Sender: FDA-Public Use
  Company Number: FR-JNJFOC-20160721337

PATIENT
  Age: 68 Year
  Sex: Female

DRUGS (5)
  1. SEROPLEX [Concomitant]
     Active Substance: ESCITALOPRAM OXALATE
     Route: 065
  2. PRAVASTATIN SODIUM. [Concomitant]
     Active Substance: PRAVASTATIN SODIUM
     Route: 065
  3. XARELTO [Suspect]
     Active Substance: RIVAROXABAN
     Indication: THROMBOSIS PROPHYLAXIS
     Route: 048
     Dates: end: 20160622
  4. ZOPICLONE [Concomitant]
     Active Substance: ZOPICLONE
     Route: 065
  5. LEVOTHYROX [Concomitant]
     Active Substance: LEVOTHYROXINE
     Route: 065

REACTIONS (2)
  - Intracranial mass [Recovering/Resolving]
  - Cerebral haematoma [Recovering/Resolving]

NARRATIVE: CASE EVENT DATE: 20160622
